FAERS Safety Report 9934736 (Version 3)
Quarter: 2014Q2

REPORT INFORMATION
  Report Type: Spontaneous
  Country: FR (occurrence: FR)
  Receive Date: 20140228
  Receipt Date: 20140609
  Transmission Date: 20141212
  Serious: Yes (Life-Threatening, Hospitalization, Other)
  Sender: FDA-Public Use
  Company Number: FR-ABBVIE-14P-056-1207776-00

PATIENT
  Age: 58 Year
  Sex: Female

DRUGS (11)
  1. CREON [Suspect]
     Indication: PRODUCT USED FOR UNKNOWN INDICATION
     Route: 048
     Dates: end: 201401
  2. TIORFAN [Suspect]
     Indication: PRODUCT USED FOR UNKNOWN INDICATION
     Dates: end: 201401
  3. VELMETIA [Suspect]
     Indication: PRODUCT USED FOR UNKNOWN INDICATION
     Dosage: FORM STRENGTH: 50MG/1000MG
     Route: 048
     Dates: start: 201311, end: 20140105
  4. VELMETIA [Suspect]
     Dosage: FORM STRENGTH: 50MG/1000MG
     Route: 048
  5. DIAMICRON [Suspect]
     Indication: PRODUCT USED FOR UNKNOWN INDICATION
     Dates: start: 201311, end: 201401
  6. DIAMICRON [Suspect]
  7. PROFENID [Suspect]
     Indication: PRODUCT USED FOR UNKNOWN INDICATION
     Dates: end: 201401
  8. MIOREL [Suspect]
     Indication: PRODUCT USED FOR UNKNOWN INDICATION
     Dates: end: 201401
  9. METFORMINE [Concomitant]
     Indication: PRODUCT USED FOR UNKNOWN INDICATION
     Route: 048
     Dates: start: 201311, end: 201401
  10. METFORMINE [Concomitant]
     Route: 048
     Dates: start: 20140115
  11. METFORMINE [Concomitant]
     Route: 048

REACTIONS (15)
  - Coma [Recovered/Resolved]
  - Diarrhoea [Recovered/Resolved]
  - General physical health deterioration [Recovered/Resolved]
  - Vomiting [Recovered/Resolved]
  - Respiratory distress [Recovered/Resolved]
  - Lactic acidosis [Recovered/Resolved]
  - Renal failure [Recovered/Resolved]
  - Skin discolouration [Unknown]
  - Hypothermia [Unknown]
  - Hypotension [Unknown]
  - Hyperphosphataemia [Unknown]
  - Lung infection [Unknown]
  - Acute pulmonary oedema [Unknown]
  - Nausea [Unknown]
  - Fluid overload [Unknown]
